FAERS Safety Report 4908152-1 (Version None)
Quarter: 2006Q1

REPORT INFORMATION
  Report Type: 
  Country: None (occurrence: None)
  Receive Date: 20060113
  Receipt Date: 20050929
  Transmission Date: 20060701
  Serious: No
  Sender: FDA-Public Use
  Company Number: 2005SP003300

PATIENT
  Sex: Female

DRUGS (11)
  1. LUNESTA [Suspect]
     Indication: INSOMNIA
     Dosage: 3 MG;HS;ORAL
     Route: 048
     Dates: start: 20050901, end: 20050901
  2. LUNESTA [Suspect]
     Indication: INSOMNIA
     Dosage: 3 MG;HS;ORAL
     Route: 048
     Dates: start: 20051001, end: 20051001
  3. SIMVASTATIN [Concomitant]
  4. MOBIC [Concomitant]
  5. CYMBALTA [Concomitant]
  6. DITROPAN [Concomitant]
  7. PANTOPRAZOLE SODIUM [Concomitant]
  8. ASPIRIN [Concomitant]
  9. FISH OIL [Concomitant]
  10. PROVIGIL [Concomitant]
  11. HYDROCODONE [Concomitant]

REACTIONS (1)
  - DYSGEUSIA [None]
